FAERS Safety Report 6731183-6 (Version None)
Quarter: 2010Q2

REPORT INFORMATION
  Report Type: 
  Country: None (occurrence: None)
  Receive Date: 20100517
  Receipt Date: 20100517
  Transmission Date: 20101027
  Serious: Yes (Hospitalization)
  Sender: FDA-Public Use
  Company Number: None

PATIENT
  Age: 63 Year
  Sex: Male
  Weight: 82.6 kg

DRUGS (1)
  1. CHLORDIAZEPOXIDE [Suspect]
     Indication: DELIRIUM TREMENS
     Dosage: 25 MG QID PO
     Route: 048
     Dates: start: 20100507, end: 20100511

REACTIONS (1)
  - SEDATION [None]
